FAERS Safety Report 10720499 (Version 42)
Quarter: 2021Q3

REPORT INFORMATION
  Report Type: Report from Study
  Country: CA (occurrence: CA)
  Receive Date: 20150119
  Receipt Date: 20210809
  Transmission Date: 20211014
  Serious: Yes (Hospitalization, Other)
  Sender: FDA-Public Use
  Company Number: PHHY2015CA005492

PATIENT
  Age: 65 Year
  Sex: Male

DRUGS (18)
  1. SANDOSTATIN [Suspect]
     Active Substance: OCTREOTIDE ACETATE
  2. SANDOSTATIN LAR DEPOT [Suspect]
     Active Substance: OCTREOTIDE ACETATE
     Dosage: 30 MG, QMO (EVERY 4 WEEKS)
     Route: 030
  3. SANDOSTATIN LAR DEPOT [Suspect]
     Active Substance: OCTREOTIDE ACETATE
     Dosage: 30 MG, QMO (ONCE A MONTH)
     Route: 030
     Dates: start: 20150601, end: 20160324
  4. LUTETIUM (177LU) CHLORIDE [Suspect]
     Active Substance: LUTETIUM CHLORIDE LU-177
     Indication: PRODUCT USED FOR UNKNOWN INDICATION
     Dosage: UNK
     Route: 065
     Dates: start: 20190709
  5. XARELTO [Concomitant]
     Active Substance: RIVAROXABAN
     Indication: PRODUCT USED FOR UNKNOWN INDICATION
     Dosage: UNK
     Route: 065
     Dates: end: 2016
  6. XALATAN [Concomitant]
     Active Substance: LATANOPROST
     Indication: PRODUCT USED FOR UNKNOWN INDICATION
     Dosage: UNK
     Route: 065
  7. SANDOSTATIN LAR DEPOT [Suspect]
     Active Substance: OCTREOTIDE ACETATE
     Dosage: 40 MG, QMO (EVERY 4 WEEKS)
     Route: 030
  8. GRAVOL [Concomitant]
     Active Substance: DIMENHYDRINATE
     Indication: PRODUCT USED FOR UNKNOWN INDICATION
     Dosage: UNK
     Route: 065
  9. SANDOSTATIN [Suspect]
     Active Substance: OCTREOTIDE ACETATE
  10. SANDOSTATIN LAR DEPOT [Suspect]
     Active Substance: OCTREOTIDE ACETATE
     Indication: CARCINOID TUMOUR
     Dosage: 20 MG, QMO (FOR 1 OR 2 MONTHS)
     Route: 030
     Dates: start: 20140819
  11. SYNTHROID [Concomitant]
     Active Substance: LEVOTHYROXINE SODIUM
     Dosage: 0.025 MG FOR 4 DAYS
     Route: 065
  12. IRON SULPHATE [Concomitant]
     Active Substance: FERROUS SULFATE ANHYDROUS
     Indication: PRODUCT USED FOR UNKNOWN INDICATION
     Dosage: UNK, TID
     Route: 065
  13. VITAMIN C [Concomitant]
     Active Substance: ASCORBIC ACID
     Indication: PRODUCT USED FOR UNKNOWN INDICATION
     Dosage: UNK, TID
     Route: 065
  14. SYNTHROID [Concomitant]
     Active Substance: LEVOTHYROXINE SODIUM
     Indication: PRODUCT USED FOR UNKNOWN INDICATION
     Dosage: UNK
     Route: 065
  15. OPDIVO [Concomitant]
     Active Substance: NIVOLUMAB
     Indication: PRODUCT USED FOR UNKNOWN INDICATION
     Dosage: UNK, Q2W
     Route: 042
     Dates: start: 20170512
  16. SANDOSTATIN LAR DEPOT [Suspect]
     Active Substance: OCTREOTIDE ACETATE
     Dosage: 30 MG, QMO (ONCE A MONTH)
     Route: 030
     Dates: start: 20160421
  17. VITAMIN D [Concomitant]
     Active Substance: VITAMIN D NOS
     Indication: PRODUCT USED FOR UNKNOWN INDICATION
     Dosage: UNK
     Route: 065
  18. SANDOSTATIN [Suspect]
     Active Substance: OCTREOTIDE ACETATE
     Indication: CARCINOID TUMOUR
     Dosage: UNK
     Route: 058
     Dates: start: 20140703

REACTIONS (41)
  - Metastases to abdominal cavity [Unknown]
  - Liver injury [Unknown]
  - Nasal congestion [Unknown]
  - Oedema [Unknown]
  - Diarrhoea [Recovered/Resolved]
  - Metastases to lung [Unknown]
  - Carcinoid tumour [Unknown]
  - Gastric disorder [Recovered/Resolved]
  - Peripheral swelling [Unknown]
  - Pain in extremity [Unknown]
  - Product delivery mechanism issue [Unknown]
  - Weight decreased [Unknown]
  - Body temperature increased [Unknown]
  - Blood pressure increased [Unknown]
  - Joint swelling [Unknown]
  - Nausea [Unknown]
  - Dizziness [Unknown]
  - Flushing [Unknown]
  - Haemoglobin decreased [Unknown]
  - Osteoarthritis [Unknown]
  - Faeces soft [Unknown]
  - Diarrhoea [Recovered/Resolved]
  - Diarrhoea [Recovered/Resolved]
  - Diarrhoea [Unknown]
  - Metastases to kidney [Unknown]
  - Nasopharyngitis [Unknown]
  - Ocular hyperaemia [Unknown]
  - Inguinal hernia [Not Recovered/Not Resolved]
  - Sciatica [Unknown]
  - Pancreatitis [Unknown]
  - Back pain [Unknown]
  - Eye swelling [Unknown]
  - Groin pain [Unknown]
  - Fatigue [Unknown]
  - Vomiting [Unknown]
  - Dehydration [Unknown]
  - Metastases to liver [Recovering/Resolving]
  - Malignant neoplasm progression [Unknown]
  - Diarrhoea [Recovered/Resolved]
  - Heart rate increased [Unknown]
  - Product dose omission issue [Unknown]

NARRATIVE: CASE EVENT DATE: 201504
